FAERS Safety Report 10630021 (Version 1)
Quarter: 2014Q4

REPORT INFORMATION
  Report Type: Spontaneous
  Country: US (occurrence: US)
  Receive Date: 20141205
  Receipt Date: 20141205
  Transmission Date: 20150529
  Serious: No
  Sender: FDA-Public Use
  Company Number: US-BRISTOL-MYERS SQUIBB COMPANY-21239132

PATIENT
  Age: 55 Year
  Sex: Female

DRUGS (1)
  1. SPRYCEL [Suspect]
     Active Substance: DASATINIB
     Dosage: 100MG TABS
     Route: 048
     Dates: start: 201406

REACTIONS (6)
  - Rash [Unknown]
  - Anxiety [Unknown]
  - Dyspnoea [Unknown]
  - Fluid retention [Unknown]
  - Panic attack [Unknown]
  - Splenomegaly [Unknown]
